FAERS Safety Report 9165963 (Version 2)
Quarter: 2013Q3

REPORT INFORMATION
  Report Type: Spontaneous
  Country: US (occurrence: US)
  Receive Date: 20130315
  Receipt Date: 20130821
  Transmission Date: 20140515
  Serious: Yes (Other)
  Sender: FDA-Public Use
  Company Number: US-PFIZER INC-2013082144

PATIENT
  Age: 61 Year
  Sex: Female
  Weight: 77.1 kg

DRUGS (11)
  1. LYRICA [Suspect]
     Indication: NEUROPATHY PERIPHERAL
     Dosage: 75 MG, 3X/DAY
     Route: 048
  2. LYRICA [Suspect]
     Indication: FIBROMYALGIA
     Dosage: 75 MG, 2X/DAY
     Route: 048
  3. FEMARA [Concomitant]
     Dosage: UNK
  4. QUIFENADINE [Concomitant]
     Dosage: UNK
  5. AMITRIPTYLINE [Concomitant]
     Dosage: 25 MG, 1X/DAY (AT BEDTIME)
     Route: 048
  6. CYMBALTA [Concomitant]
     Dosage: 60 MG, 1X/DAY
     Route: 048
  7. FOLIC ACID [Concomitant]
     Dosage: 1 MG, 3X/DAY
     Route: 048
  8. IBUPROFEN [Concomitant]
     Dosage: 800 MG, 2X/DAY
     Route: 048
  9. METHOTREXATE [Concomitant]
     Dosage: 2.5 MG, 8 TABLET BY MOUTH Q1 WEEK
     Route: 048
  10. TIZANIDINE [Concomitant]
     Dosage: 4 MG, ? TABS TWICE DAILY AND 2 TABS AT BEDTIME
     Route: 048
  11. HUMIRA [Concomitant]
     Dosage: 1 DF, WEEKLY (40 MG/0.8 ML SUB Q KIT)
     Route: 058

REACTIONS (8)
  - Drug withdrawal syndrome [Unknown]
  - Bladder disorder [Unknown]
  - Diverticulitis [Unknown]
  - Abdominal pain [Unknown]
  - Change of bowel habit [Unknown]
  - Irritable bowel syndrome [Unknown]
  - Constipation [Unknown]
  - Contusion [Unknown]
